FAERS Safety Report 8575485-X (Version None)
Quarter: 2012Q3

REPORT INFORMATION
  Report Type: 
  Country: None (occurrence: None)
  Receive Date: 20120807
  Receipt Date: 20120802
  Transmission Date: 20120928
  Serious: Yes (Hospitalization)
  Sender: FDA-Public Use
  Company Number: PHEH2012US015219

PATIENT
  Age: 75 Year
  Sex: Male

DRUGS (1)
  1. FANAPT [Suspect]
     Route: 048

REACTIONS (3)
  - TREMOR [None]
  - CHEST DISCOMFORT [None]
  - VOMITING [None]
